FAERS Safety Report 5589324-2 (Version None)
Quarter: 2008Q1

REPORT INFORMATION
  Report Type: 
  Country: None (occurrence: None)
  Receive Date: 20080114
  Receipt Date: 20080107
  Transmission Date: 20080703
  Serious: Yes (Other)
  Sender: FDA-Public Use
  Company Number: FR-AVENTIS-200810063FR

PATIENT
  Age: 78 Year
  Sex: Female

DRUGS (3)
  1. ARAVA [Suspect]
     Route: 048
     Dates: start: 20070101, end: 20070101
  2. ARAVA [Suspect]
     Route: 048
     Dates: start: 20070101
  3. ARAVA [Suspect]
     Route: 048
     Dates: start: 20070101

REACTIONS (3)
  - GASTROINTESTINAL DISORDER [None]
  - RETINAL HAEMORRHAGE [None]
  - VISUAL ACUITY REDUCED [None]
